FAERS Safety Report 5231300-3 (Version None)
Quarter: 2007Q1

REPORT INFORMATION
  Report Type: 
  Country: None (occurrence: None)
  Receive Date: 20070205
  Receipt Date: 20070205
  Transmission Date: 20070707
  Serious: Yes (Life-Threatening)
  Sender: FDA-Public Use
  Company Number: None

PATIENT
  Sex: Female
  Weight: 61 kg

DRUGS (12)
  1. DEPAKOTE [Suspect]
     Indication: ALCOHOL WITHDRAWAL SYNDROME
     Dosage: 250MG EC TID PO  MONTHS -} YEARS, UNKNOWN
     Route: 048
  2. DEPAKOTE [Suspect]
     Indication: CONVULSION
     Dosage: 250MG EC TID PO  MONTHS -} YEARS, UNKNOWN
     Route: 048
  3. FLAGYL [Concomitant]
  4. PROTONIX [Concomitant]
  5. SODIUM CHLORIDE [Concomitant]
  6. D5 1/2 K20 [Concomitant]
  7. LEXAPRO [Concomitant]
  8. DIAZEPAM [Concomitant]
  9. CLOTRIMAZOLE [Concomitant]
  10. MULTI-VITAMIN [Concomitant]
  11. FOLIC ACID [Concomitant]
  12. THIAMINE [Concomitant]

REACTIONS (7)
  - DEHYDRATION [None]
  - HYPONATRAEMIA [None]
  - LEUKOCYTOSIS [None]
  - NAUSEA [None]
  - POISONING [None]
  - THROMBOCYTOPENIA [None]
  - VOMITING [None]
